FAERS Safety Report 24814929 (Version 1)
Quarter: 2025Q1

REPORT INFORMATION
  Report Type: Spontaneous
  Country: GB (occurrence: GB)
  Receive Date: 20250107
  Receipt Date: 20250107
  Transmission Date: 20250408
  Serious: Yes (Other)
  Sender: MYLAN
  Company Number: GB-MYLANLABS-2024M1115109

PATIENT
  Sex: Male
  Weight: 80.2 kg

DRUGS (4)
  1. CLOZARIL [Suspect]
     Active Substance: CLOZAPINE
     Indication: Product used for unknown indication
     Dosage: 150 MILLIGRAM, BID
     Route: 048
     Dates: start: 20131017
  2. LITHIUM [Concomitant]
     Active Substance: LITHIUM
     Dosage: UNK, BID (200MG ONCE MORNING 400MG ONCE NIGHT)
     Route: 065
  3. AMISULPRIDE [Concomitant]
     Active Substance: AMISULPRIDE
     Dosage: 200 MILLIGRAM, BID
     Route: 065
  4. VALPROATE SODIUM [Concomitant]
     Active Substance: VALPROATE SODIUM
     Dosage: 1 GRAM, BID
     Route: 065

REACTIONS (2)
  - Type 2 diabetes mellitus [Unknown]
  - Differential white blood cell count abnormal [Unknown]
